FAERS Safety Report 5749547-6 (Version None)
Quarter: 2008Q2

REPORT INFORMATION
  Report Type: 
  Country: None (occurrence: None)
  Receive Date: 20080527
  Receipt Date: 20080520
  Transmission Date: 20081010
  Serious: Yes (Other)
  Sender: FDA-Public Use
  Company Number: US-ASTRAZENECA-2007UW18303

PATIENT
  Age: 38 Year
  Sex: Male

DRUGS (9)
  1. SEROQUEL [Suspect]
     Indication: BIPOLAR DISORDER
     Route: 048
     Dates: start: 19980101, end: 19990101
  2. SEROQUEL [Suspect]
     Indication: DEPRESSION
     Route: 048
     Dates: start: 19980101, end: 19990101
  3. SEROQUEL [Suspect]
     Indication: SCHIZOPHRENIA
     Route: 048
     Dates: start: 19980101, end: 19990101
  4. ZYPREXA [Suspect]
     Indication: BIPOLAR DISORDER
     Dates: start: 19980101, end: 19990101
  5. ZYPREXA [Suspect]
     Indication: DEPRESSION
     Dates: start: 19980101, end: 19990101
  6. ZYPREXA [Suspect]
     Indication: SCHIZOPHRENIA
     Dates: start: 19980101, end: 19990101
  7. RISPERDAL [Suspect]
     Indication: BIPOLAR DISORDER
     Dates: start: 20000101, end: 20010101
  8. RISPERDAL [Suspect]
     Indication: DEPRESSION
     Dates: start: 20000101, end: 20010101
  9. RISPERDAL [Suspect]
     Indication: SCHIZOPHRENIA
     Dates: start: 20000101, end: 20010101

REACTIONS (2)
  - NEUROPATHY PERIPHERAL [None]
  - TYPE 2 DIABETES MELLITUS [None]
